FAERS Safety Report 6269382-2 (Version None)
Quarter: 2009Q3

REPORT INFORMATION
  Report Type: 
  Country: None (occurrence: None)
  Receive Date: 20090713
  Receipt Date: 20090702
  Transmission Date: 20100115
  Serious: No
  Sender: FDA-Public Use
  Company Number: 20097036

PATIENT
  Age: 50 Year
  Sex: Male

DRUGS (3)
  1. LIORESAL [Suspect]
     Indication: MUSCLE SPASTICITY
     Dosage: DAILY, INTRATHECAL
     Route: 037
  2. LAROXYL [Concomitant]
  3. ANTIHYPERTENSIVE DRUG [Concomitant]

REACTIONS (2)
  - DEVICE RELATED INFECTION [None]
  - SEPSIS [None]
